FAERS Safety Report 18867435 (Version 10)
Quarter: 2025Q1

REPORT INFORMATION
  Report Type: Report from Study
  Country: CO (occurrence: CO)
  Receive Date: 20210209
  Receipt Date: 20250114
  Transmission Date: 20250409
  Serious: Yes (Other)
  Sender: NOVARTIS
  Company Number: NVSC2020CO348869

PATIENT
  Sex: Female
  Weight: 74 kg

DRUGS (24)
  1. KISQALI [Suspect]
     Active Substance: RIBOCICLIB
     Indication: Hormone receptor positive HER2 negative breast cancer
     Dosage: 600 MG, QD (3 OF 200 MG)
     Route: 048
     Dates: start: 20200825
  2. KISQALI [Suspect]
     Active Substance: RIBOCICLIB
     Indication: Breast cancer female
     Dosage: 600 MG, QD
     Route: 048
     Dates: start: 202010
  3. KISQALI [Suspect]
     Active Substance: RIBOCICLIB
     Indication: Breast cancer metastatic
     Dosage: 400 MG, QD (TABLET OF 200 MG)
     Route: 048
  4. KISQALI [Suspect]
     Active Substance: RIBOCICLIB
     Indication: Neoplasm malignant
     Dosage: 200 MG, QD (2 TAB)
     Route: 048
     Dates: end: 202102
  5. KISQALI [Suspect]
     Active Substance: RIBOCICLIB
     Dosage: 200 MG, QD (2 TAB)
     Route: 048
     Dates: start: 202103
  6. KISQALI [Suspect]
     Active Substance: RIBOCICLIB
     Dosage: 600 MG, QD
     Route: 048
  7. KISQALI [Suspect]
     Active Substance: RIBOCICLIB
     Dosage: 600 MG, QD
     Route: 065
  8. KISQALI [Suspect]
     Active Substance: RIBOCICLIB
     Dosage: 600 MG, QD (DAILY)
     Route: 065
     Dates: end: 20241003
  9. KISQALI [Suspect]
     Active Substance: RIBOCICLIB
     Dosage: 600 MG, QD (DAILY)
     Route: 065
     Dates: start: 20241206, end: 202412
  10. FEMARA [Concomitant]
     Active Substance: LETROZOLE
     Indication: Breast cancer
     Dosage: 2.5 MG, QD (FILM-COATED TABLET)
     Route: 048
     Dates: start: 20200825
  11. FEMARA [Concomitant]
     Active Substance: LETROZOLE
     Dosage: 2.5 MG, QD (FILM-COATED TABLET)
     Route: 048
     Dates: start: 202010, end: 202412
  12. LEVOTHYROXINE [Concomitant]
     Active Substance: LEVOTHYROXINE
     Indication: Thyroid disorder
     Dosage: 50 MG, QD  (START DATE: 15 YEARS AGO)
     Route: 048
  13. LEVOTHYROXINE [Concomitant]
     Active Substance: LEVOTHYROXINE
     Indication: Hypothyroidism
     Dosage: 50 MG, QD
     Route: 048
     Dates: start: 202003
  14. LEVOTHYROXINE [Concomitant]
     Active Substance: LEVOTHYROXINE
     Dosage: 50 MG, QD
     Route: 048
     Dates: start: 202007
  15. CALCIUM\VITAMIN D [Concomitant]
     Active Substance: CALCIUM\VITAMIN D
     Indication: Bone disorder
     Dosage: 1 DOSAGE FORM, QD
     Route: 048
     Dates: start: 202011
  16. CALCIUM\VITAMIN D [Concomitant]
     Active Substance: CALCIUM\VITAMIN D
     Dosage: 600 MG, QD
     Route: 048
     Dates: start: 202101
  17. BUSCAPINA [Concomitant]
     Indication: Abdominal pain upper
     Route: 048
     Dates: start: 202003
  18. BUSCAPINA [Concomitant]
     Route: 048
  19. BUSCAPINA [Concomitant]
     Route: 048
  20. HERBALS\PLANTAGO OVATA SEED [Concomitant]
     Active Substance: HERBALS\PLANTAGO OVATA SEED
     Indication: Constipation
     Dosage: UNK, Q12H (EVERY 12 HOURS) (AFTER BREAKFAST AND AFTER FOOD), CURRENTLY ONLY TAKES IT AT NIGHT)
     Route: 048
     Dates: start: 202011
  21. HERBALS\PLANTAGO OVATA SEED [Concomitant]
     Active Substance: HERBALS\PLANTAGO OVATA SEED
     Route: 065
  22. PANTOPRAX [Concomitant]
     Indication: Synovial cyst
     Route: 048
     Dates: start: 202011
  23. DIMETHICONE\PINAVERIUM BROMIDE [Concomitant]
     Active Substance: DIMETHICONE\PINAVERIUM BROMIDE
     Indication: Product used for unknown indication
     Route: 065
  24. PREGABALIN [Concomitant]
     Active Substance: PREGABALIN
     Indication: Breast pain
     Route: 065

REACTIONS (26)
  - Helicobacter infection [Recovered/Resolved]
  - Pneumonitis [Recovering/Resolving]
  - Pelvic inflammatory disease [Unknown]
  - Metastases to bone [Unknown]
  - Hip fracture [Recovering/Resolving]
  - Uterine inflammation [Recovering/Resolving]
  - Lip dry [Not Recovered/Not Resolved]
  - Nasal dryness [Recovered/Resolved]
  - Bone disorder [Unknown]
  - Pain in extremity [Unknown]
  - Dry mouth [Recovered/Resolved]
  - Alopecia [Recovered/Resolved]
  - Arthralgia [Recovering/Resolving]
  - Tongue dry [Not Recovered/Not Resolved]
  - Abdominal pain [Unknown]
  - Nasal pruritus [Recovered/Resolved]
  - Bone pain [Not Recovered/Not Resolved]
  - Back pain [Recovering/Resolving]
  - Pelvic pain [Recovering/Resolving]
  - Weight decreased [Unknown]
  - Illness [Unknown]
  - Meniscus injury [Recovering/Resolving]
  - Breast induration [Recovered/Resolved]
  - Hypersensitivity [Unknown]
  - Feeling abnormal [Recovering/Resolving]
  - Lip disorder [Not Recovered/Not Resolved]

NARRATIVE: CASE EVENT DATE: 20240101
